FAERS Safety Report 7297696-6 (Version None)
Quarter: 2011Q1

REPORT INFORMATION
  Report Type: 
  Country: None (occurrence: None)
  Receive Date: 20110216
  Receipt Date: 20110209
  Transmission Date: 20110831
  Serious: Yes (Other)
  Sender: FDA-Public Use
  Company Number: FR-BRISTOL-MYERS SQUIBB COMPANY-15421381

PATIENT
  Age: 50 Year
  Sex: Female
  Weight: 78 kg

DRUGS (2)
  1. ONGLYZA [Suspect]
     Indication: DIABETES MELLITUS
     Dosage: 1 TAB ORAL/DAY
     Route: 048
     Dates: end: 20101211
  2. METFORMIN HCL [Suspect]
     Indication: DIABETES MELLITUS
     Dosage: DECREASED 850MGX2
     Dates: start: 20101120, end: 20101211

REACTIONS (2)
  - VISION BLURRED [None]
  - DIARRHOEA [None]
